FAERS Safety Report 20052124 (Version 1)
Quarter: 2021Q4

REPORT INFORMATION
  Report Type: Spontaneous
  Country: US (occurrence: US)
  Receive Date: 20211110
  Receipt Date: 20211110
  Transmission Date: 20220304
  Serious: Yes (Death, Other)
  Sender: FDA-Public Use
  Company Number: US-CADILA HEALTHCARE LIMITED-US-ZYDUS-071205

PATIENT

DRUGS (1)
  1. METHOTREXATE [Suspect]
     Active Substance: METHOTREXATE
     Indication: Product used for unknown indication
     Dosage: UNK
     Route: 065

REACTIONS (7)
  - Blister [Unknown]
  - Coagulopathy [Unknown]
  - Delirium [Unknown]
  - Haemolysis [Unknown]
  - Toxicity to various agents [Fatal]
  - Thrombocytopenia [Unknown]
  - Rash [Unknown]
